FAERS Safety Report 20679571 (Version 1)
Quarter: 2022Q2

REPORT INFORMATION
  Report Type: Spontaneous
  Country: US (occurrence: US)
  Receive Date: 20220406
  Receipt Date: 20220406
  Transmission Date: 20220720
  Serious: No
  Sender: FDA-Public Use
  Company Number: US-PFIZER INC-2021906781

PATIENT
  Age: 70 Year
  Sex: Male
  Weight: 72.562 kg

DRUGS (8)
  1. INLYTA [Suspect]
     Active Substance: AXITINIB
     Indication: Neoplasm malignant
     Dosage: 5 MG, 1 TABLET, TWICE A DAY
     Route: 048
     Dates: start: 20210618
  2. LOVASTATIN ACTAVIS [Concomitant]
     Dosage: 10 MG
  3. XGEVA [Concomitant]
     Active Substance: DENOSUMAB
     Dosage: 120 MG /1.7 VIAL
  4. CALCIUM [Concomitant]
     Active Substance: CALCIUM
     Dosage: 600 MG
  5. VITAMIN D3 [Concomitant]
     Active Substance: CHOLECALCIFEROL
     Dosage: 10 UG
  6. LEVOTHYROXINE [Concomitant]
     Active Substance: LEVOTHYROXINE
     Dosage: 100 UG
  7. METOPROLOL SUCCINATE [Concomitant]
     Active Substance: METOPROLOL SUCCINATE
  8. LISINOPRIL [Concomitant]
     Active Substance: LISINOPRIL
     Dosage: 10 MG

REACTIONS (3)
  - Blood pressure increased [Unknown]
  - Dysphonia [Unknown]
  - Glossodynia [Unknown]
